FAERS Safety Report 5380615-7 (Version None)
Quarter: 2007Q3

REPORT INFORMATION
  Report Type: 
  Country: None (occurrence: None)
  Receive Date: 20070706
  Receipt Date: 20070626
  Transmission Date: 20080115
  Serious: Yes (Life-Threatening, Hospitalization)
  Sender: FDA-Public Use
  Company Number: US-GENENTECH-241656

PATIENT
  Age: 21 Year
  Sex: Female
  Weight: 57.143 kg

DRUGS (1)
  1. RAPTIVA [Suspect]
     Indication: PSORIASIS
     Dosage: 0.6 ML, 1/WEEK
     Route: 058
     Dates: start: 20040201, end: 20070101

REACTIONS (2)
  - BURKITT'S LYMPHOMA [None]
  - LEUKAEMIA [None]
